FAERS Safety Report 20317833 (Version 3)
Quarter: 2022Q2

REPORT INFORMATION
  Report Type: Spontaneous
  Country: US (occurrence: US)
  Receive Date: 20220110
  Receipt Date: 20220404
  Transmission Date: 20220721
  Serious: Yes (Other)
  Sender: FDA-Public Use
  Company Number: US-PFIZER INC-202101871849

PATIENT
  Age: 73 Year
  Sex: Female

DRUGS (2)
  1. IBRANCE [Suspect]
     Active Substance: PALBOCICLIB
     Dosage: 125 MG, ONCE A DAY FOR 21 DAYS ON AND 7 DAYS OFF
     Route: 048
     Dates: start: 2021
  2. LETROZOLE [Concomitant]
     Active Substance: LETROZOLE
     Dosage: UNK

REACTIONS (14)
  - Rectal haemorrhage [Not Recovered/Not Resolved]
  - Epistaxis [Unknown]
  - Proctitis [Not Recovered/Not Resolved]
  - Constipation [Unknown]
  - Skin disorder [Unknown]
  - Hyperhidrosis [Unknown]
  - Grip strength decreased [Unknown]
  - Fatigue [Unknown]
  - Nasopharyngitis [Unknown]
  - Hot flush [Unknown]
  - Feeling abnormal [Unknown]
  - Ear disorder [Unknown]
  - Oral disorder [Unknown]
  - Full blood count abnormal [Unknown]

NARRATIVE: CASE EVENT DATE: 20210101
